FAERS Safety Report 18737229 (Version 1)
Quarter: 2021Q1

REPORT INFORMATION
  Report Type: Spontaneous
  Country: CA (occurrence: CA)
  Receive Date: 20210113
  Receipt Date: 20210113
  Transmission Date: 20210419
  Serious: Yes (Life-Threatening, Hospitalization, Other)
  Sender: FDA-Public Use
  Company Number: CA-TEVA-2020-CA-1864618

PATIENT
  Age: 15 Year
  Sex: Female
  Weight: 57 kg

DRUGS (24)
  1. ACETAMINOPHEN. [Concomitant]
     Active Substance: ACETAMINOPHEN
  2. DEXAMETHASONE. [Concomitant]
     Active Substance: DEXAMETHASONE
     Route: 065
  3. HYDROCORTISONE ACETATE/PRAMOXINE HYDROCHLORIDE [Concomitant]
  4. MESNA. [Concomitant]
     Active Substance: MESNA
  5. NORETHINDRONE. [Concomitant]
     Active Substance: NORETHINDRONE
  6. POLYETHYLENE GLYCOL [Concomitant]
     Active Substance: POLYETHYLENE GLYCOLS
  7. CETIRIZINE [Concomitant]
     Active Substance: CETIRIZINE HYDROCHLORIDE
  8. VALACYCLOVIR [Concomitant]
     Active Substance: VALACYCLOVIR HYDROCHLORIDE
  9. DIPHENHYDRAMINE. [Concomitant]
     Active Substance: DIPHENHYDRAMINE
  10. NYSTATIN. [Concomitant]
     Active Substance: NYSTATIN
  11. ONDANSETRON [Concomitant]
     Active Substance: ONDANSETRON
  12. ETOPOSIDE. [Suspect]
     Active Substance: ETOPOSIDE
     Indication: EWING^S SARCOMA
     Route: 042
  13. FLUCONAZOLE. [Concomitant]
     Active Substance: FLUCONAZOLE
  14. LEUPROLIDE [Concomitant]
     Active Substance: LEUPROLIDE
  15. TRIMETHOPRIM?SULFAMETHOXAZOLE [Concomitant]
     Active Substance: SULFAMETHOXAZOLE\TRIMETHOPRIM
  16. ZINC. [Concomitant]
     Active Substance: ZINC
  17. IFOSFAMIDE FOR INJECTION, USP [Suspect]
     Active Substance: IFOSFAMIDE
     Indication: EWING^S SARCOMA
     Route: 042
  18. METOCLOPRAMIDE. [Concomitant]
     Active Substance: METOCLOPRAMIDE
  19. MORPHINE [Concomitant]
     Active Substance: MORPHINE
  20. TRANEXAMIC ACID. [Concomitant]
     Active Substance: TRANEXAMIC ACID
  21. DIMENHYDRINATE. [Concomitant]
     Active Substance: DIMENHYDRINATE
  22. FILGRASTIM [Concomitant]
     Active Substance: FILGRASTIM
  23. HEPARIN CALCIUM [Concomitant]
     Active Substance: HEPARIN CALCIUM
  24. MUPIROCIN. [Concomitant]
     Active Substance: MUPIROCIN

REACTIONS (1)
  - Febrile neutropenia [Unknown]
